FAERS Safety Report 5603381-6 (Version None)
Quarter: 2008Q1

REPORT INFORMATION
  Report Type: 
  Country: None (occurrence: None)
  Receive Date: 20080122
  Receipt Date: 20070529
  Transmission Date: 20080703
  Serious: Yes (Disabling)
  Sender: FDA-Public Use
  Company Number: WS070133

PATIENT
  Sex: Male

DRUGS (6)
  1. MUSE [Suspect]
     Indication: ERECTILE DYSFUNCTION
  2. BETOPTIC [Concomitant]
  3. FERROUS SULFATE [Concomitant]
  4. MESALAMINE [Concomitant]
  5. QUININE SULFATE [Concomitant]
  6. RAMIPRIL [Concomitant]

REACTIONS (2)
  - COLITIS ULCERATIVE [None]
  - CONDITION AGGRAVATED [None]
